FAERS Safety Report 22020945 (Version 1)
Quarter: 2023Q1

REPORT INFORMATION
  Report Type: Spontaneous
  Country: US (occurrence: None)
  Receive Date: 20230217
  Receipt Date: 20230217
  Transmission Date: 20230417
  Serious: Yes (Hospitalization, Disabling, Other)
  Sender: FDA-Public Use
  Company Number: None

PATIENT
  Age: 46 Year
  Sex: Female
  Weight: 77.85 kg

DRUGS (11)
  1. XEOMIN [Suspect]
     Active Substance: INCOBOTULINUMTOXINA
     Indication: Skin cosmetic procedure
     Dosage: FREQUENCY : ONCE?OTHER ROUTE : INJECTED INTO THE FOREHEAD /BROW?
     Route: 050
     Dates: start: 20230210, end: 20230210
  2. Naltroxone [Concomitant]
  3. PROGESTERONE [Concomitant]
     Active Substance: PROGESTERONE
  4. VITAMINS [Concomitant]
     Active Substance: VITAMINS
  5. MAGNESIUM [Concomitant]
     Active Substance: MAGNESIUM
  6. PROBIOTICS NOS [Concomitant]
     Active Substance: PROBIOTICS NOS
  7. VITAMIN C [Concomitant]
     Active Substance: ASCORBIC ACID
  8. UNSPECIFIED INGREDIENT [Concomitant]
     Active Substance: UNSPECIFIED INGREDIENT
  9. CYANOCOBALAMIN\DEXPANTHENOL\NIACINAMIDE\PYRIDOXINE HYDROCHLORIDE\RIBOF [Concomitant]
     Active Substance: CYANOCOBALAMIN\DEXPANTHENOL\NIACINAMIDE\PYRIDOXINE HYDROCHLORIDE\RIBOFLAVIN 5^-PHOSPHATE SODIUM\THIA
  10. lipomino injections [Concomitant]
  11. NUTRAFOL [Concomitant]

REACTIONS (23)
  - Dizziness [None]
  - Feeling abnormal [None]
  - Dizziness [None]
  - Feeling abnormal [None]
  - Palpitations [None]
  - Flushing [None]
  - Hypoaesthesia [None]
  - Tremor [None]
  - Throat tightness [None]
  - Nausea [None]
  - Heart rate increased [None]
  - Fear [None]
  - Head discomfort [None]
  - Illness [None]
  - Crying [None]
  - Somnolence [None]
  - Asthenia [None]
  - Impaired driving ability [None]
  - Headache [None]
  - Diarrhoea [None]
  - Fatigue [None]
  - Impaired work ability [None]
  - Loss of personal independence in daily activities [None]

NARRATIVE: CASE EVENT DATE: 20230211
